FAERS Safety Report 14372602 (Version 5)
Quarter: 2019Q1

REPORT INFORMATION
  Report Type: Spontaneous
  Country: US (occurrence: US)
  Receive Date: 20180110
  Receipt Date: 20190107
  Transmission Date: 20190417
  Serious: Yes (Other)
  Sender: FDA-Public Use
  Company Number: US-PFIZER INC-2018009631

PATIENT
  Age: 57 Year
  Sex: Female
  Weight: 68.27 kg

DRUGS (6)
  1. XARELTO [Concomitant]
     Active Substance: RIVAROXABAN
     Indication: EMBOLISM VENOUS
     Dosage: 20 MG, DAILY
     Route: 048
  2. XARELTO [Concomitant]
     Active Substance: RIVAROXABAN
     Dosage: 20 MG, 1X/DAY (DAILY WITH DINNER)
     Route: 048
  3. IBRANCE [Suspect]
     Active Substance: PALBOCICLIB
     Dosage: 125 MG, CYCLIC (DAILY FOR 21 DAYS, 7 DAYS OFF)
     Route: 048
  4. XANAX [Concomitant]
     Active Substance: ALPRAZOLAM
     Dosage: 1 MG, AS NEEDED (TAKE 2 TABLETS BY MOUTH 3 TIMES A DAY)
     Route: 048
  5. FEMARA [Concomitant]
     Active Substance: LETROZOLE
     Dosage: 2.5 MG, DAILY (TAKE WITH OR WITHOUT FOOD)
     Route: 048
  6. BETAMETHASONE/MICONAZOLE/MUPIROCIN [Concomitant]
     Dosage: UNK, 2X/DAY (FOR 5 DAYS)
     Route: 045

REACTIONS (5)
  - Post procedural infection [Unknown]
  - Pulmonary thrombosis [Unknown]
  - Abdominal discomfort [Unknown]
  - Irritable bowel syndrome [Unknown]
  - Thrombosis [Unknown]
